FAERS Safety Report 21747418 (Version 1)
Quarter: 2022Q4

REPORT INFORMATION
  Report Type: Report from Study
  Country: US (occurrence: US)
  Receive Date: 20221219
  Receipt Date: 20221219
  Transmission Date: 20230113
  Serious: Yes (Other)
  Sender: FDA-Public Use
  Company Number: US-GLAXOSMITHKLINE-US2022008779

PATIENT

DRUGS (19)
  1. NIRAPARIB [Suspect]
     Active Substance: NIRAPARIB
     Indication: Ovarian cancer
     Dosage: 200 MG, QD
     Route: 048
     Dates: start: 20220110
  2. NIRAPARIB [Suspect]
     Active Substance: NIRAPARIB
     Indication: Fallopian tube cancer
     Dosage: 200 MG, QD
     Route: 048
  3. NIRAPARIB [Suspect]
     Active Substance: NIRAPARIB
     Dosage: 200 MG, QD (PM WITH FOOD)
     Route: 048
  4. NIRAPARIB [Suspect]
     Active Substance: NIRAPARIB
     Dosage: 200 MG, QD (PM WITH FOOD)
     Route: 048
  5. NIRAPARIB [Suspect]
     Active Substance: NIRAPARIB
     Dosage: 200 MG, QD
  6. NIRAPARIB [Suspect]
     Active Substance: NIRAPARIB
     Dosage: 200 MG, QD
     Dates: end: 20221203
  7. IRBESARTAN [Concomitant]
     Active Substance: IRBESARTAN
     Indication: Product used for unknown indication
     Dosage: 75 MG, Z (PRN)
  8. ZOFRAN [Concomitant]
     Active Substance: ONDANSETRON HYDROCHLORIDE
     Indication: Product used for unknown indication
     Dosage: 4 MG, Z (PRN)
  9. VITAMIN D3 [Concomitant]
     Active Substance: CHOLECALCIFEROL
     Indication: Product used for unknown indication
     Dosage: UNK UNK, QD (2000 UNIT)
  10. VITAMIN B12 [Concomitant]
     Active Substance: CYANOCOBALAMIN
     Indication: Product used for unknown indication
     Dosage: 1000 ?G, QD
  11. TYLENOL [Concomitant]
     Active Substance: ACETAMINOPHEN
     Indication: Product used for unknown indication
     Dosage: UNK UNK, Z (PRN)
  12. LIDOCAINE [Concomitant]
     Active Substance: LIDOCAINE
     Indication: Product used for unknown indication
     Dosage: UNK, EXT
  13. IBUPROFEN [Concomitant]
     Active Substance: IBUPROFEN
     Indication: Product used for unknown indication
     Dosage: UNK UNK, Z (PRN)
  14. LIDOCAINE\PRILOCAINE [Concomitant]
     Active Substance: LIDOCAINE\PRILOCAINE
     Indication: Product used for unknown indication
     Dosage: UNK
  15. LIDOCAIN CREAM [Concomitant]
     Indication: Product used for unknown indication
     Dosage: UNK
  16. SALONPAS PATCHES [Concomitant]
     Indication: Product used for unknown indication
     Dosage: UNK
  17. XANAX [Concomitant]
     Active Substance: ALPRAZOLAM
     Indication: Product used for unknown indication
     Dosage: UNK UNK, Z (PRN)
  18. DOXYCYCLINE [Concomitant]
     Active Substance: DOXYCYCLINE
     Indication: Product used for unknown indication
     Dosage: UNK
  19. ZANAFLEX [Concomitant]
     Active Substance: TIZANIDINE HYDROCHLORIDE
     Indication: Product used for unknown indication
     Dosage: UNK UNK, Z (PRN)

REACTIONS (33)
  - Neuropathy peripheral [Not Recovered/Not Resolved]
  - Constipation [Not Recovered/Not Resolved]
  - Paraesthesia [Recovered/Resolved]
  - Pruritus [Recovered/Resolved]
  - Sleep disorder [Recovered/Resolved]
  - Fatigue [Not Recovered/Not Resolved]
  - Back pain [Recovered/Resolved]
  - Middle insomnia [Unknown]
  - Blood pressure increased [Recovering/Resolving]
  - Platelet count decreased [Unknown]
  - Red blood cell count decreased [Unknown]
  - Haematocrit decreased [Unknown]
  - Haemoglobin decreased [Not Recovered/Not Resolved]
  - Myalgia [Recovered/Resolved]
  - Hypersensitivity [Not Recovered/Not Resolved]
  - Rhinorrhoea [Recovered/Resolved]
  - Gingival swelling [Not Recovered/Not Resolved]
  - Dry mouth [Not Recovered/Not Resolved]
  - Pain in jaw [Recovered/Resolved]
  - Sciatica [Recovering/Resolving]
  - Sinus disorder [Recovered/Resolved]
  - Nasal disorder [Recovered/Resolved]
  - Increased appetite [Not Recovered/Not Resolved]
  - Memory impairment [Not Recovered/Not Resolved]
  - Hair growth abnormal [Not Recovered/Not Resolved]
  - Sinusitis [Not Recovered/Not Resolved]
  - Anxiety [Not Recovered/Not Resolved]
  - Taste disorder [Not Recovered/Not Resolved]
  - Lymphadenopathy [Unknown]
  - Muscle spasms [Not Recovered/Not Resolved]
  - Pollakiuria [Not Recovered/Not Resolved]
  - Therapeutic response unexpected [Unknown]
  - Off label use [Not Recovered/Not Resolved]

NARRATIVE: CASE EVENT DATE: 20220101
